FAERS Safety Report 9718899 (Version 1)
Quarter: 2013Q4

REPORT INFORMATION
  Report Type: Spontaneous
  Country: DE (occurrence: None)
  Receive Date: 20131126
  Receipt Date: 20131126
  Transmission Date: 20140711
  Serious: Yes (Other)
  Sender: FDA-Public Use
  Company Number: B0946604A

PATIENT
  Sex: 0

DRUGS (3)
  1. MELPHALAN [Suspect]
     Indication: AMYLOIDOSIS
     Dosage: 15 MG/KG /  SEE DOSAGE TEXT / ORAL
     Route: 048
  2. DEXAMETHASONE [Suspect]
     Dosage: 20 MG / SEE DOSAGE TEXT/ ORAL
     Route: 048
  3. LENALIDOMIDE [Suspect]

REACTIONS (1)
  - Renal failure acute [None]
